FAERS Safety Report 5033727-1 (Version None)
Quarter: 2006Q2

REPORT INFORMATION
  Report Type: 
  Country: None (occurrence: None)
  Receive Date: 20060620
  Receipt Date: 20060608
  Transmission Date: 20061013
  Serious: Yes (Other)
  Sender: FDA-Public Use
  Company Number: S06-ITA-01558-01

PATIENT
  Age: 55 Year
  Sex: Male

DRUGS (2)
  1. ESCITALOPRAM OXALATE [Suspect]
     Indication: DEPRESSION
     Dosage: 10 MG QD PO
     Route: 048
  2. CARBOLITHIUM (LITHIUM CARBONATE) [Concomitant]

REACTIONS (5)
  - BIPOLAR I DISORDER [None]
  - CONDITION AGGRAVATED [None]
  - DEPRESSION [None]
  - FAMILY STRESS [None]
  - HOMICIDE [None]
